FAERS Safety Report 18958107 (Version 1)
Quarter: 2021Q1

REPORT INFORMATION
  Report Type: Spontaneous
  Country: PE (occurrence: PE)
  Receive Date: 20210301
  Receipt Date: 20210301
  Transmission Date: 20210420
  Serious: Yes (Hospitalization)
  Sender: FDA-Public Use
  Company Number: None

PATIENT
  Age: 22 Year
  Sex: Male
  Weight: 53 kg

DRUGS (1)
  1. ISOCHECK 20 [Suspect]
     Active Substance: ISOTRETINOIN
     Indication: ACNE
     Route: 048
     Dates: start: 20200619, end: 20201015

REACTIONS (10)
  - Headache [None]
  - Hypoaesthesia [None]
  - Alopecia [None]
  - Back pain [None]
  - Arthralgia [None]
  - Dyspepsia [None]
  - Paraesthesia [None]
  - Rhinorrhoea [None]
  - Gastrointestinal disorder [None]
  - Ocular icterus [None]

NARRATIVE: CASE EVENT DATE: 20210103
